FAERS Safety Report 7110183-0 (Version None)
Quarter: 2010Q4

REPORT INFORMATION
  Report Type: 
  Country: None (occurrence: None)
  Receive Date: 20101118
  Receipt Date: 20101110
  Transmission Date: 20110411
  Serious: Yes (Hospitalization)
  Sender: FDA-Public Use
  Company Number: BR-ASTRAZENECA-2010SE53739

PATIENT
  Age: 19 Year
  Sex: Female

DRUGS (3)
  1. SEROQUEL [Suspect]
     Dosage: THREE TABLETS
     Route: 048
  2. TOPAMAX [Suspect]
     Dosage: FOUR TABLETS
     Route: 048
  3. ZOLOFT [Suspect]
     Dosage: FOUR TABLETS
     Route: 048

REACTIONS (4)
  - CHEST PAIN [None]
  - OVERDOSE [None]
  - SUICIDE ATTEMPT [None]
  - TACHYCARDIA [None]
